FAERS Safety Report 22023411 (Version 1)
Quarter: 2023Q1

REPORT INFORMATION
  Report Type: Spontaneous
  Country: IN (occurrence: IN)
  Receive Date: 20230223
  Receipt Date: 20230223
  Transmission Date: 20230418
  Serious: Yes (Other)
  Sender: FDA-Public Use
  Company Number: IN-002147023-NVSC2023IN032950

PATIENT
  Sex: Male

DRUGS (4)
  1. RANIBIZUMAB [Suspect]
     Active Substance: RANIBIZUMAB
     Indication: Age-related macular degeneration
     Dosage: UNK (ONE)
     Route: 065
  2. BROLUCIZUMAB [Suspect]
     Active Substance: BROLUCIZUMAB
     Indication: Choroidal neovascularisation
     Dosage: UNK, QMO
     Route: 050
     Dates: start: 20221201
  3. BROLUCIZUMAB [Suspect]
     Active Substance: BROLUCIZUMAB
     Indication: Neovascular age-related macular degeneration
  4. BEOVU [Concomitant]
     Active Substance: BROLUCIZUMAB-DBLL
     Dosage: BEOVU BD FILTER NEEDLE

REACTIONS (6)
  - Vitritis [Recovering/Resolving]
  - Blindness [Recovering/Resolving]
  - Age-related macular degeneration [Unknown]
  - Disease progression [Unknown]
  - Visual acuity reduced [Recovering/Resolving]
  - Intraocular pressure increased [Recovering/Resolving]

NARRATIVE: CASE EVENT DATE: 20230125
